FAERS Safety Report 17629056 (Version 1)
Quarter: 2020Q2

REPORT INFORMATION
  Report Type: Spontaneous
  Country: US (occurrence: US)
  Receive Date: 20200406
  Receipt Date: 20200406
  Transmission Date: 20200713
  Serious: No
  Sender: FDA-Public Use
  Company Number: US-ALLERGAN-1934213US

PATIENT
  Sex: Male

DRUGS (2)
  1. MESALAZINE - BP [Suspect]
     Active Substance: MESALAMINE
     Indication: PRODUCT USED FOR UNKNOWN INDICATION
     Dosage: 1000 MG, QD
     Route: 065
  2. XELJANZ [Suspect]
     Active Substance: TOFACITINIB CITRATE
     Indication: UPPER RESPIRATORY TRACT INFECTION
     Dosage: 10 MG, BID
     Route: 048
     Dates: start: 20190807

REACTIONS (4)
  - Abdominal pain lower [Unknown]
  - Haematochezia [Unknown]
  - Diarrhoea [Unknown]
  - Bowel movement irregularity [Unknown]
